FAERS Safety Report 10296499 (Version 1)
Quarter: 2014Q3

REPORT INFORMATION
  Report Type: Spontaneous
  Country: US (occurrence: None)
  Receive Date: 20140708
  Receipt Date: 20140708
  Transmission Date: 20150326
  Serious: Yes (Other)
  Sender: FDA-Public Use
  Company Number: AUR-APL-2014-07092

PATIENT
  Age: 71 Year
  Sex: Female

DRUGS (1)
  1. TRAMADOL TABLET (TRAMADOL) TABLET [Suspect]
     Active Substance: TRAMADOL
     Indication: ARTHRALGIA
     Dosage: 30 DF
     Route: 048

REACTIONS (5)
  - Muscular weakness [None]
  - Drug withdrawal syndrome [None]
  - Leukocytosis [None]
  - Overdose [None]
  - Personality disorder [None]
